FAERS Safety Report 6366586-5 (Version None)
Quarter: 2009Q3

REPORT INFORMATION
  Report Type: 
  Country: None (occurrence: None)
  Receive Date: 20090921
  Receipt Date: 20090910
  Transmission Date: 20100115
  Serious: Yes (Death)
  Sender: FDA-Public Use
  Company Number: ZA-BRISTOL-MYERS SQUIBB COMPANY-14785638

PATIENT
  Sex: Female

DRUGS (3)
  1. EFAVIRENZ [Suspect]
     Route: 048
  2. LAMIVUDINE [Concomitant]
  3. STAVUDINE [Concomitant]

REACTIONS (2)
  - DEATH [None]
  - PREGNANCY [None]
